FAERS Safety Report 5122076-9 (Version None)
Quarter: 2006Q4

REPORT INFORMATION
  Report Type: 
  Country: None (occurrence: None)
  Receive Date: 20061004
  Receipt Date: 20061004
  Transmission Date: 20070319
  Serious: Yes (Other)
  Sender: FDA-Public Use
  Company Number: None

PATIENT
  Age: 90 Year
  Sex: Female
  Weight: 51.2565 kg

DRUGS (12)
  1. OMEPRAZOLE [Suspect]
     Indication: GASTROOESOPHAGEAL REFLUX DISEASE
     Dosage: 20 MG PO DAILY
     Route: 048
     Dates: start: 20060602, end: 20060714
  2. SYNTHROID [Concomitant]
  3. MTV [Concomitant]
  4. EVISTA [Concomitant]
  5. DDS [Concomitant]
  6. NAMENDA [Concomitant]
  7. OSCAL [Concomitant]
  8. TYLENOL ES [Concomitant]
  9. MOM [Concomitant]
  10. DULCOLAX [Concomitant]
  11. FLEETS [Concomitant]
  12. LORAZEPAM [Concomitant]

REACTIONS (1)
  - PLATELET COUNT DECREASED [None]
